FAERS Safety Report 9565540 (Version 4)
Quarter: 2013Q4

REPORT INFORMATION
  Report Type: Report from Study
  Country: US (occurrence: US)
  Receive Date: 20130930
  Receipt Date: 20131101
  Transmission Date: 20140711
  Serious: Yes (Life-Threatening, Hospitalization)
  Sender: FDA-Public Use
  Company Number: US-ACTELION-A-NJ2012-70434

PATIENT
  Age: 78 Year
  Sex: Female

DRUGS (3)
  1. TRACLEER [Suspect]
     Indication: PULMONARY ARTERIAL HYPERTENSION
     Dosage: UNK
     Route: 048
     Dates: start: 2010
  2. TRACLEER [Suspect]
     Dosage: UNK
     Route: 048
  3. LASIX [Concomitant]

REACTIONS (4)
  - Lung neoplasm malignant [Recovering/Resolving]
  - Thoracotomy [Recovering/Resolving]
  - Cor pulmonale [Recovering/Resolving]
  - Bronchitis chronic [Unknown]
